FAERS Safety Report 7151368-7 (Version None)
Quarter: 2010Q4

REPORT INFORMATION
  Report Type: 
  Country: None (occurrence: None)
  Receive Date: 20101210
  Receipt Date: 20101203
  Transmission Date: 20110411
  Serious: Yes (Other)
  Sender: FDA-Public Use
  Company Number: US-PFIZER INC-2009314561

PATIENT
  Sex: Male
  Weight: 87.5 kg

DRUGS (4)
  1. SUTENT [Suspect]
     Indication: RENAL CELL CARCINOMA
     Dosage: 50 MG, 1X/DAY, 28 DAYS CYCLE AND OFF FOR 14 DAYS
     Route: 048
     Dates: start: 20080601
  2. PRILOSEC [Concomitant]
     Indication: GASTROOESOPHAGEAL REFLUX DISEASE
     Dosage: 50 MG, 1X/DAY
  3. ADVAIR DISKUS 100/50 [Concomitant]
     Dosage: UNK
  4. SPIRIVA [Concomitant]
     Dosage: UNK

REACTIONS (14)
  - BLOOD PRESSURE INCREASED [None]
  - DIARRHOEA [None]
  - DISEASE PROGRESSION [None]
  - DYSGEUSIA [None]
  - EPISTAXIS [None]
  - FATIGUE [None]
  - LOWER LIMB FRACTURE [None]
  - NAUSEA [None]
  - PALMAR-PLANTAR ERYTHRODYSAESTHESIA SYNDROME [None]
  - PNEUMONIA [None]
  - RASH [None]
  - RENAL CELL CARCINOMA [None]
  - VISION BLURRED [None]
  - VOMITING [None]
